FAERS Safety Report 9159731 (Version 1)
Quarter: 2013Q1

REPORT INFORMATION
  Report Type: Spontaneous
  Country: US (occurrence: US)
  Receive Date: 20130313
  Receipt Date: 20130313
  Transmission Date: 20140127
  Serious: No
  Sender: FDA-Public Use
  Company Number: US-PFIZER INC-2013079885

PATIENT
  Age: 64 Year
  Sex: Female
  Weight: 52.15 kg

DRUGS (3)
  1. ADVIL [Suspect]
     Indication: PAIN
     Dosage: 200 MG, AS NEEDED
  2. ADVIL PM [Suspect]
     Indication: PAIN
     Dosage: UNK, AS NEEDED
     Dates: start: 201301
  3. ALEVE [Concomitant]
     Indication: PAIN
     Dosage: UNK, AS NEEDED

REACTIONS (5)
  - Drug ineffective [Unknown]
  - Restlessness [Unknown]
  - Anxiety [Unknown]
  - Fatigue [Unknown]
  - Hypoaesthesia [Unknown]
